FAERS Safety Report 6444127-1 (Version None)
Quarter: 2009Q4

REPORT INFORMATION
  Report Type: 
  Country: None (occurrence: None)
  Receive Date: 20091118
  Receipt Date: 20091108
  Transmission Date: 20100525
  Serious: Yes (Other)
  Sender: FDA-Public Use
  Company Number: PL-JNJFOC-20091002481

PATIENT
  Sex: Male
  Weight: 80 kg

DRUGS (6)
  1. STELARA [Suspect]
     Indication: PSORIASIS
     Route: 058
     Dates: start: 20090902, end: 20090930
  2. PERINDOPRIL [Concomitant]
     Indication: HYPERTENSION
     Route: 048
  3. INDAPAMIDE [Concomitant]
     Indication: HYPERTENSION
     Route: 048
  4. FENOFIBRATE [Concomitant]
     Indication: HYPERLIPIDAEMIA
     Route: 048
  5. PANTOPRAZOLE [Concomitant]
     Indication: OESOPHAGITIS
     Route: 048
  6. PANTOPRAZOLE [Concomitant]
     Indication: GASTRITIS
     Route: 048

REACTIONS (1)
  - CYTOMEGALOVIRUS INFECTION [None]
